FAERS Safety Report 19840219 (Version 1)
Quarter: 2021Q3

REPORT INFORMATION
  Report Type: Spontaneous
  Country: US (occurrence: US)
  Receive Date: 20210916
  Receipt Date: 20210916
  Transmission Date: 20211014
  Serious: Yes (Hospitalization, Other)
  Sender: FDA-Public Use
  Company Number: US-STRIDES ARCOLAB LIMITED-2021SP027732

PATIENT
  Age: 56 Year
  Sex: Male

DRUGS (2)
  1. PREDNISOLONE. [Suspect]
     Active Substance: PREDNISOLONE
     Indication: POLYARTHRITIS
     Dosage: UNK, TAPERING DOSE
     Route: 065
  2. COLCHICINE. [Suspect]
     Active Substance: COLCHICINE
     Indication: PAIN
     Dosage: UNK
     Route: 065

REACTIONS (7)
  - Hydrocephalus [Recovered/Resolved]
  - Drug ineffective for unapproved indication [Unknown]
  - Condition aggravated [Recovered/Resolved]
  - Meningitis gonococcal [Recovered/Resolved]
  - Encephalopathy [Recovered/Resolved]
  - Hyponatraemia [Recovered/Resolved]
  - Gonococcal infection [Recovered/Resolved]
